FAERS Safety Report 6374303-8 (Version None)
Quarter: 2009Q3

REPORT INFORMATION
  Report Type: 
  Country: None (occurrence: None)
  Receive Date: 20090924
  Receipt Date: 20090914
  Transmission Date: 20100115
  Serious: Yes (Other)
  Sender: FDA-Public Use
  Company Number: JP-JNJFOC-20090206778

PATIENT
  Sex: Male
  Weight: 69 kg

DRUGS (4)
  1. REMICADE [Suspect]
     Dosage: TOTAL OF 7 DOSES GIVEN
     Route: 042
     Dates: start: 20080201, end: 20090101
  2. REMICADE [Suspect]
     Route: 042
     Dates: start: 20080201, end: 20090101
  3. REMICADE [Suspect]
     Indication: CROHN'S DISEASE
     Dosage: 6 INFUSIONS ON UNKNOWN DATES
     Route: 042
     Dates: start: 20080201, end: 20090101
  4. PENTASA [Concomitant]
     Indication: CROHN'S DISEASE
     Route: 048

REACTIONS (1)
  - PULMONARY SARCOIDOSIS [None]
